FAERS Safety Report 4676481-5 (Version None)
Quarter: 2005Q2

REPORT INFORMATION
  Report Type: 
  Country: None (occurrence: None)
  Receive Date: 20050525
  Receipt Date: 20050513
  Transmission Date: 20051028
  Serious: Yes (Hospitalization)
  Sender: FDA-Public Use
  Company Number: 05H-056-0299131-00

PATIENT
  Age: 67 Year
  Sex: Male

DRUGS (10)
  1. ATROPINE SULFATE [Suspect]
     Indication: ANAESTHESIA
     Dosage: 0.5 MG
     Dates: start: 20041217, end: 20041217
  2. KETAMINE HYDROCHLORIDE INJECTION [Suspect]
     Indication: ANAESTHESIA
     Dosage: 10 MG
     Dates: start: 20041217, end: 20041217
  3. MIDAZOLAM HYDROCHLORIDE [Suspect]
     Indication: ANAESTHESIA
     Dosage: 2.5 MG
     Dates: start: 20041217, end: 20041217
  4. PROPOFOL [Suspect]
     Indication: ANAESTHESIA
     Dosage: 2.5 MG
     Dates: start: 20041217, end: 20041217
  5. FENOFIBRATE [Suspect]
     Indication: DYSLIPIDAEMIA
     Dosage: ORAL
     Route: 048
     Dates: start: 19840101, end: 20041222
  6. ULTANE [Suspect]
     Indication: ANAESTHESIA
     Dates: start: 20041217, end: 20041217
  7. PANTOPRAZOLE [Suspect]
     Indication: GASTROOESOPHAGEAL REFLUX DISEASE
     Dosage: 40 MG AS REQUIRED PRN, ORAL
     Route: 048
     Dates: end: 20041222
  8. ACETAMINOPHEN W/ PROPOXYPHENE HCL [Suspect]
     Indication: PAIN
     Dosage: ORAL
     Dates: start: 20041218, end: 20041222
  9. CLOXACILLIN SODIUM [Suspect]
     Indication: INFECTION PROPHYLAXIS
     Dates: start: 20041219, end: 20041222
  10. ALFUZOSIN HYDROCHLORIDE [Concomitant]
     Indication: BENIGN PROSTATIC HYPERPLASIA

REACTIONS (3)
  - DRUG INTERACTION [None]
  - POST PROCEDURAL COMPLICATION [None]
  - RHABDOMYOLYSIS [None]
